FAERS Safety Report 23514650 (Version 1)
Quarter: 2024Q1

REPORT INFORMATION
  Report Type: Spontaneous
  Country: ES (occurrence: ES)
  Receive Date: 20240212
  Receipt Date: 20240212
  Transmission Date: 20240409
  Serious: Yes (Hospitalization, Other)
  Sender: FDA-Public Use
  Company Number: ES-ACIC Fine Chemicals Inc-2153076

PATIENT
  Age: 41 Year
  Sex: Male

DRUGS (5)
  1. BACLOFEN [Suspect]
     Active Substance: BACLOFEN
  2. VALPROIC ACID [Suspect]
     Active Substance: VALPROIC ACID
  3. FOLIC ACID [Concomitant]
     Active Substance: FOLIC ACID
  4. CLOBAZAM [Suspect]
     Active Substance: CLOBAZAM
  5. LACOSAMIDE [Suspect]
     Active Substance: LACOSAMIDE

REACTIONS (1)
  - Pancreatitis acute [Recovered/Resolved with Sequelae]
